FAERS Safety Report 10189093 (Version 3)
Quarter: 2014Q3

REPORT INFORMATION
  Report Type: Spontaneous
  Country: IN (occurrence: None)
  Receive Date: 20140520
  Receipt Date: 20140710
  Transmission Date: 20150326
  Serious: Yes (Other)
  Sender: FDA-Public Use
  Company Number: AUR-APL-2014-05798

PATIENT
  Age: 4 Month
  Sex: Female

DRUGS (3)
  1. DIVALPROEX SODIUM DELAYED RELEASE [Suspect]
     Active Substance: DIVALPROEX SODIUM
     Indication: INFANTILE SPASMS
  2. CLONAZEPAM (CLONAZEPAM) (CLONAZEPAM) [Concomitant]
     Active Substance: CLONAZEPAM
  3. ACTH (CORTICOTROPIN) [Concomitant]

REACTIONS (12)
  - Unresponsive to stimuli [None]
  - Vomiting [None]
  - Depressed level of consciousness [None]
  - Convulsion [None]
  - Somnolence [None]
  - Hepatic encephalopathy [None]
  - Anticonvulsant drug level increased [None]
  - Off label use [None]
  - Infantile spasms [None]
  - Toxicity to various agents [None]
  - Hyperammonaemia [None]
  - Drug level increased [None]
